FAERS Safety Report 9953232 (Version 1)
Quarter: 2014Q1

REPORT INFORMATION
  Report Type: Report from Study
  Country: US (occurrence: US)
  Receive Date: 20140304
  Receipt Date: 20140304
  Transmission Date: 20141002
  Serious: No
  Sender: FDA-Public Use
  Company Number: US-ABBVIE-13P-163-1077269-00

PATIENT
  Age: 62 Year
  Sex: Female

DRUGS (48)
  1. HUMIRA [Suspect]
     Indication: COLITIS ULCERATIVE
     Dosage: DAY 1
     Dates: start: 20130412, end: 20130412
  2. HUMIRA [Suspect]
  3. FLEXERIL [Concomitant]
     Indication: PRODUCT USED FOR UNKNOWN INDICATION
     Dosage: 5 MG THREE TIMES A DAY - AS REQUIRED
  4. ASACOL HD [Concomitant]
     Indication: PRODUCT USED FOR UNKNOWN INDICATION
  5. RANEXA [Concomitant]
     Indication: PRODUCT USED FOR UNKNOWN INDICATION
  6. LYRICA [Concomitant]
     Indication: PRODUCT USED FOR UNKNOWN INDICATION
  7. HYDROCODONE [Concomitant]
     Indication: PRODUCT USED FOR UNKNOWN INDICATION
     Dosage: 10/325 MG 1 EVERY 6 HOURS - AS REQUIRED
  8. PREDNISONE [Concomitant]
     Indication: PRODUCT USED FOR UNKNOWN INDICATION
     Dosage: FOR 1 WEEK
  9. PREDNISONE [Concomitant]
     Dosage: FOR 2 WEEKS
  10. PREDNISONE [Concomitant]
     Dosage: FOR 2 WEEKS, ECT
  11. SEROQUEL [Concomitant]
     Indication: PRODUCT USED FOR UNKNOWN INDICATION
     Dosage: AT BEDTIME
  12. LANTUS [Concomitant]
     Indication: PRODUCT USED FOR UNKNOWN INDICATION
     Dosage: AT BEDTIME
  13. NOVOLOG [Concomitant]
     Indication: PRODUCT USED FOR UNKNOWN INDICATION
  14. HYDROCORTISONE AC [Concomitant]
     Indication: PRODUCT USED FOR UNKNOWN INDICATION
  15. COMBIVENT [Concomitant]
     Indication: PRODUCT USED FOR UNKNOWN INDICATION
     Dosage: INHALER
  16. ADVAIR [Concomitant]
     Indication: PRODUCT USED FOR UNKNOWN INDICATION
     Dosage: INHALER
  17. MICARDIS [Concomitant]
     Indication: PRODUCT USED FOR UNKNOWN INDICATION
  18. FISH OIL [Concomitant]
     Indication: PRODUCT USED FOR UNKNOWN INDICATION
  19. LEXAPRO [Concomitant]
     Indication: PRODUCT USED FOR UNKNOWN INDICATION
  20. DIGOXIN [Concomitant]
     Indication: PRODUCT USED FOR UNKNOWN INDICATION
  21. ISORDIL [Concomitant]
     Indication: PRODUCT USED FOR UNKNOWN INDICATION
  22. HYDRALAZINE [Concomitant]
     Indication: PRODUCT USED FOR UNKNOWN INDICATION
  23. SIMVASTATIN [Concomitant]
     Indication: PRODUCT USED FOR UNKNOWN INDICATION
     Dosage: AT BEDTIME
  24. POTASSIUM [Concomitant]
     Indication: PRODUCT USED FOR UNKNOWN INDICATION
  25. OXYCONTIN [Concomitant]
     Indication: PRODUCT USED FOR UNKNOWN INDICATION
  26. OXYCONTIN [Concomitant]
  27. OXYCONTIN [Concomitant]
  28. OXYCONTIN [Concomitant]
  29. OXYCONTIN [Concomitant]
  30. OXYCONTIN [Concomitant]
  31. OXYCONTIN [Concomitant]
  32. METOPROLOL [Concomitant]
     Indication: PRODUCT USED FOR UNKNOWN INDICATION
  33. TEMAZEPAM [Concomitant]
     Indication: PRODUCT USED FOR UNKNOWN INDICATION
     Dosage: AT BEDTIME
  34. TEMAZEPAM [Concomitant]
  35. TEMAZEPAM [Concomitant]
  36. TEMAZEPAM [Concomitant]
  37. TEMAZEPAM [Concomitant]
  38. TEMAZEPAM [Concomitant]
  39. TEMAZEPAM [Concomitant]
  40. CLONIDINE [Concomitant]
     Indication: PRODUCT USED FOR UNKNOWN INDICATION
  41. DEXILANT [Concomitant]
     Indication: PRODUCT USED FOR UNKNOWN INDICATION
  42. LASIX [Concomitant]
     Indication: PRODUCT USED FOR UNKNOWN INDICATION
  43. DIAZEPAM [Concomitant]
     Indication: PRODUCT USED FOR UNKNOWN INDICATION
     Dosage: 2 MG THREE TIMES A DAY - AS REQUIRED
  44. ZOFRAN [Concomitant]
     Indication: PRODUCT USED FOR UNKNOWN INDICATION
     Dosage: 4 MG 1-2 BID-TID - AS REQUIRED
  45. PLAVIX [Concomitant]
     Indication: PRODUCT USED FOR UNKNOWN INDICATION
  46. MINOXIDIL [Concomitant]
     Indication: PRODUCT USED FOR UNKNOWN INDICATION
  47. METFORMIN [Concomitant]
     Indication: PRODUCT USED FOR UNKNOWN INDICATION
  48. NITROGLYCERIN [Concomitant]
     Indication: PRODUCT USED FOR UNKNOWN INDICATION

REACTIONS (6)
  - Decreased appetite [Recovering/Resolving]
  - Ageusia [Recovering/Resolving]
  - Nausea [Recovering/Resolving]
  - Injection site pain [Recovering/Resolving]
  - Chest pain [Recovering/Resolving]
  - Hypertension [Recovering/Resolving]
